FAERS Safety Report 5961282-8 (Version None)
Quarter: 2008Q4

REPORT INFORMATION
  Report Type: 
  Country: None (occurrence: None)
  Receive Date: 20081121
  Receipt Date: 20081111
  Transmission Date: 20090506
  Serious: Yes (Other)
  Sender: FDA-Public Use
  Company Number: US-AMGEN-QUU300109

PATIENT
  Sex: Female

DRUGS (5)
  1. ENBREL [Suspect]
     Indication: PSORIASIS
     Route: 058
     Dates: start: 20071113, end: 20080807
  2. ENBREL [Suspect]
     Indication: PSORIATIC ARTHROPATHY
  3. VALTREX [Concomitant]
  4. ADDERALL 10 [Concomitant]
  5. UNSPECIFIED ANTIBIOTIC [Concomitant]

REACTIONS (6)
  - GESTATIONAL DIABETES [None]
  - INJECTION SITE PAIN [None]
  - INTRA-UTERINE DEATH [None]
  - NAUSEA [None]
  - PLACENTAL DISORDER [None]
  - PSORIASIS [None]
